FAERS Safety Report 6356522-X (Version None)
Quarter: 2009Q3

REPORT INFORMATION
  Report Type: 
  Country: None (occurrence: None)
  Receive Date: 20090915
  Receipt Date: 20090910
  Transmission Date: 20100115
  Serious: Yes (Other)
  Sender: FDA-Public Use
  Company Number: D0060231A

PATIENT
  Sex: Male

DRUGS (3)
  1. AVODART [Suspect]
     Route: 048
     Dates: start: 20081201, end: 20090901
  2. MINOXIDIL [Suspect]
     Route: 065
  3. FINASTERID [Concomitant]
     Route: 065

REACTIONS (41)
  - ALOPECIA [None]
  - ANGINA PECTORIS [None]
  - ARTHRALGIA [None]
  - ASTHENIA [None]
  - BLISTER [None]
  - BLOOD PRESSURE INCREASED [None]
  - BURNING SENSATION [None]
  - CYANOSIS [None]
  - DYSPNOEA [None]
  - EYE DISCHARGE [None]
  - EYE SWELLING [None]
  - EYES SUNKEN [None]
  - FATIGUE [None]
  - FEELING ABNORMAL [None]
  - FLUSHING [None]
  - GENITAL DISCOMFORT [None]
  - GENITAL LESION [None]
  - GINGIVAL ERYTHEMA [None]
  - HAEMATOSPERMIA [None]
  - HAEMORRHOIDS [None]
  - HAIR COLOUR CHANGES [None]
  - HAIR TEXTURE ABNORMAL [None]
  - HEAD DEFORMITY [None]
  - HEADACHE [None]
  - HEART RATE INCREASED [None]
  - HOT FLUSH [None]
  - INCREASED BRONCHIAL SECRETION [None]
  - LIBIDO DECREASED [None]
  - MEMORY IMPAIRMENT [None]
  - OBESITY [None]
  - OCULAR HYPERAEMIA [None]
  - PRODUCTIVE COUGH [None]
  - SECRETION DISCHARGE [None]
  - SKIN ATROPHY [None]
  - SKIN DISCOLOURATION [None]
  - SOMNOLENCE [None]
  - STOMATITIS [None]
  - SWELLING FACE [None]
  - TACHYCARDIA [None]
  - TESTIS DISCOMFORT [None]
  - VISUAL IMPAIRMENT [None]
